FAERS Safety Report 9502783 (Version 3)
Quarter: 2013Q4

REPORT INFORMATION
  Report Type: Spontaneous
  Country: CH (occurrence: CH)
  Receive Date: 20130906
  Receipt Date: 20131024
  Transmission Date: 20140711
  Serious: Yes (Hospitalization, Other)
  Sender: FDA-Public Use
  Company Number: CH-JNJFOC-20130900947

PATIENT
  Age: 50 Year
  Sex: Female

DRUGS (3)
  1. REMICADE [Suspect]
     Indication: CROHN^S DISEASE
     Dosage: RECIEVED THREE INFUSIONS
     Route: 042
     Dates: start: 20130415
  2. REMICADE [Suspect]
     Indication: CROHN^S DISEASE
     Dosage: THIRD INFUSION
     Route: 042
     Dates: start: 2013, end: 2013
  3. BISOPROLOL [Concomitant]
     Indication: HYPERTENSION
     Route: 048

REACTIONS (2)
  - Anal abscess [Recovering/Resolving]
  - General physical health deterioration [Recovering/Resolving]
